FAERS Safety Report 6136857-6 (Version None)
Quarter: 2009Q1

REPORT INFORMATION
  Report Type: 
  Country: None (occurrence: None)
  Receive Date: 20090330
  Receipt Date: 20090317
  Transmission Date: 20090719
  Serious: Yes (Hospitalization)
  Sender: FDA-Public Use
  Company Number: ES-ELI_LILLY_AND_COMPANY-ES200903005802

PATIENT
  Age: 69 Year
  Sex: Female

DRUGS (4)
  1. FORTEO [Suspect]
     Indication: OSTEOPOROSIS
     Dosage: 20 UG, UNK
     Route: 058
     Dates: start: 20081229, end: 20090305
  2. ANAFRANIL [Concomitant]
     Indication: DEPRESSION
     Dates: start: 20080901, end: 20080305
  3. CONDRO SAN [Concomitant]
     Indication: CHONDROPATHY
     Dosage: UNK, UNKNOWN
     Route: 065
     Dates: start: 20030101, end: 20090305
  4. CAFINITRINA [Concomitant]
     Indication: ANGINA PECTORIS
     Dates: start: 20030101, end: 20090305

REACTIONS (3)
  - ASPHYXIA [None]
  - CARDIAC FAILURE [None]
  - RESPIRATORY FAILURE [None]
